FAERS Safety Report 23974497 (Version 1)
Quarter: 2024Q2

REPORT INFORMATION
  Report Type: Spontaneous
  Country: GB (occurrence: GB)
  Receive Date: 20240614
  Receipt Date: 20240614
  Transmission Date: 20240716
  Serious: Yes (Hospitalization)
  Sender: FDA-Public Use
  Company Number: None

PATIENT
  Sex: Male

DRUGS (1)
  1. ENTECAVIR [Suspect]
     Active Substance: ENTECAVIR
     Indication: Product used for unknown indication
     Dosage: 0.5 MILLIGRAM, QOD (ONCE EVERY 2 DAYS)
     Route: 065

REACTIONS (1)
  - Fall [Recovering/Resolving]
